FAERS Safety Report 19990771 (Version 1)
Quarter: 2021Q4

REPORT INFORMATION
  Report Type: Spontaneous
  Country: US (occurrence: US)
  Receive Date: 20211025
  Receipt Date: 20211025
  Transmission Date: 20220303
  Serious: Yes (Death, Hospitalization)
  Sender: FDA-Public Use
  Company Number: US-STRIDES ARCOLAB LIMITED-2021SP029103

PATIENT
  Age: 52 Year
  Sex: Female

DRUGS (3)
  1. PREDNISOLONE [Suspect]
     Active Substance: PREDNISOLONE
     Indication: Rheumatoid arthritis
     Dosage: UNK
     Route: 065
  2. LEFLUNOMIDE [Suspect]
     Active Substance: LEFLUNOMIDE
     Indication: Rheumatoid arthritis
     Dosage: UNK
     Route: 065
  3. LEFLUNOMIDE [Suspect]
     Active Substance: LEFLUNOMIDE
     Dosage: UNK
     Route: 065

REACTIONS (14)
  - Pulmonary alveolar haemorrhage [Fatal]
  - Escherichia bacteraemia [Fatal]
  - Pseudomonas infection [Fatal]
  - Ecthyma [Fatal]
  - Enterococcal infection [Fatal]
  - Cellulitis gangrenous [Fatal]
  - Abscess limb [Fatal]
  - Renal failure [Not Recovered/Not Resolved]
  - Shock [Unknown]
  - Hypoxia [Not Recovered/Not Resolved]
  - Lymphopenia [Unknown]
  - Respiratory distress [Not Recovered/Not Resolved]
  - Encephalopathy [Unknown]
  - Purulent discharge [Unknown]
